FAERS Safety Report 5199855-5 (Version None)
Quarter: 2007Q1

REPORT INFORMATION
  Report Type: 
  Country: None (occurrence: None)
  Receive Date: 20070103
  Receipt Date: 20070103
  Transmission Date: 20070707
  Serious: Yes (Disabling)
  Sender: FDA-Public Use
  Company Number: None

PATIENT
  Age: 75 Year
  Sex: Male
  Weight: 73 kg

DRUGS (1)
  1. BRIMONIDINE TARTRATE [Suspect]
     Indication: OPEN ANGLE GLAUCOMA
     Dosage: 1 DROP TID OPHTHALMIC
     Route: 047
     Dates: start: 20061214, end: 20061222

REACTIONS (7)
  - ERYTHEMA OF EYELID [None]
  - EYE DISCHARGE [None]
  - EYE IRRITATION [None]
  - EYE PAIN [None]
  - EYELID OEDEMA [None]
  - PHARMACEUTICAL PRODUCT COMPLAINT [None]
  - PHOTOSENSITIVITY REACTION [None]
